FAERS Safety Report 9262763 (Version 1)
Quarter: 2013Q2

REPORT INFORMATION
  Report Type: Spontaneous
  Country: US (occurrence: None)
  Receive Date: 20130426
  Receipt Date: 20130426
  Transmission Date: 20140414
  Serious: Yes (Hospitalization)
  Sender: FDA-Public Use
  Company Number: None

PATIENT
  Age: 64 Year
  Sex: Female
  Weight: 67.8 kg

DRUGS (2)
  1. CARFILZOMIB [Suspect]
     Indication: PLASMA CELL MYELOMA
     Dosage: 3/4 WEEKS
     Dates: start: 20120918, end: 20121127
  2. PEGYLATED LIPOSOMAL DOXORUBICIN [Suspect]
     Indication: PLASMA CELL MYELOMA
     Dates: start: 20120918, end: 20121127

REACTIONS (2)
  - Chronic obstructive pulmonary disease [None]
  - Anaemia [None]
